FAERS Safety Report 16691499 (Version 1)
Quarter: 2019Q3

REPORT INFORMATION
  Report Type: Spontaneous
  Country: HR (occurrence: HR)
  Receive Date: 20190812
  Receipt Date: 20190812
  Transmission Date: 20191004
  Serious: Yes (Other)
  Sender: FDA-Public Use
  Company Number: HR-TEVA-2019-HR-1090874

PATIENT
  Sex: Female

DRUGS (3)
  1. OLANZAPIN [Suspect]
     Active Substance: OLANZAPINE
     Route: 048
     Dates: start: 20190517, end: 20190517
  2. HALDOL DEPO [Concomitant]
     Route: 030
  3. AKINETON [Concomitant]
     Active Substance: BIPERIDEN HYDROCHLORIDE

REACTIONS (2)
  - Loss of consciousness [Unknown]
  - Overdose [Unknown]

NARRATIVE: CASE EVENT DATE: 20190517
